FAERS Safety Report 13781719 (Version 1)
Quarter: 2017Q3

REPORT INFORMATION
  Report Type: Spontaneous
  Country: US (occurrence: US)
  Receive Date: 20170724
  Receipt Date: 20170724
  Transmission Date: 20171127
  Serious: Yes (Death, Hospitalization, Other)
  Sender: FDA-Public Use
  Company Number: US-TORRENT-00001162

PATIENT
  Age: 41 Year
  Sex: Female
  Weight: 61 kg

DRUGS (6)
  1. ACETYLSALICYLIC ACID [Concomitant]
     Active Substance: ASPIRIN
  2. CARBAMAZEPINE. [Suspect]
     Active Substance: CARBAMAZEPINE
  3. PARACETAMOL [Concomitant]
     Active Substance: ACETAMINOPHEN
  4. METAMFETAMINE [Concomitant]
     Active Substance: METHAMPHETAMINE
  5. VALPORIC ACID [Concomitant]
     Active Substance: VALPROIC ACID
  6. LITHIUM CARBONATE. [Concomitant]
     Active Substance: LITHIUM CARBONATE

REACTIONS (7)
  - Overdose [Fatal]
  - Brain injury [Fatal]
  - Hypotension [Fatal]
  - Cardiac arrest [Fatal]
  - Acidosis [Fatal]
  - Compartment syndrome [Fatal]
  - Unresponsive to stimuli [Fatal]
